FAERS Safety Report 4586876-6 (Version None)
Quarter: 2005Q1

REPORT INFORMATION
  Report Type: 
  Country: None (occurrence: None)
  Receive Date: 20050216
  Receipt Date: 20050216
  Transmission Date: 20050727
  Serious: Yes (Life-Threatening)
  Sender: FDA-Public Use
  Company Number: None

PATIENT
  Sex: Female
  Weight: 130.1823 kg

DRUGS (3)
  1. COUMADIN [Suspect]
     Indication: DEEP VEIN THROMBOSIS
     Dosage: 2 MG TABLETS/LIFELONG
  2. COUMADIN [Suspect]
     Indication: FACTOR V LEIDEN MUTATION
     Dosage: 2 MG TABLETS/LIFELONG
  3. COUMADIN [Suspect]
     Indication: PULMONARY EMBOLISM
     Dosage: 2 MG TABLETS/LIFELONG

REACTIONS (2)
  - INTERNATIONAL NORMALISED RATIO FLUCTUATION [None]
  - PHARMACEUTICAL PRODUCT COMPLAINT [None]
